FAERS Safety Report 25845876 (Version 1)
Quarter: 2025Q3

REPORT INFORMATION
  Report Type: Spontaneous
  Country: EU (occurrence: EU)
  Receive Date: 20250925
  Receipt Date: 20250925
  Transmission Date: 20251021
  Serious: Yes (Hospitalization)
  Sender: RANBAXY
  Company Number: EU-AEMPS-1690962

PATIENT
  Age: 87 Year
  Sex: Male
  Weight: 56 kg

DRUGS (6)
  1. CLOPIDOGREL [Suspect]
     Active Substance: CLOPIDOGREL BISULFATE
     Indication: Thrombosis prophylaxis
     Dosage: 75 MILLIGRAM, QD, 75MG EVERY 24 HOURS
     Route: 048
     Dates: start: 20141106, end: 20250217
  2. ACETYLCYSTEINE [Concomitant]
     Active Substance: ACETYLCYSTEINE
     Indication: Cough
     Dosage: 600 MILLIGRAM, QD
     Route: 048
     Dates: start: 20250212, end: 20250217
  3. METAMIZOL [Concomitant]
     Active Substance: METAMIZOLE SODIUM
     Indication: Back pain
     Dosage: 575 MILLIGRAM, TID
     Route: 048
     Dates: start: 20250205, end: 20250212
  4. CEFTRIAXONE [Concomitant]
     Active Substance: CEFTRIAXONE
     Indication: Antibiotic prophylaxis
     Route: 040
     Dates: start: 20250215, end: 20250215
  5. CEFIXIME [Concomitant]
     Active Substance: CEFIXIME
     Indication: Antibiotic prophylaxis
     Dosage: 400 MILLIGRAM, QD
     Route: 048
     Dates: start: 20250216, end: 20250217
  6. Buscapina [Concomitant]
     Indication: Urethral pain
     Dosage: 10 MILLIGRAM, TID
     Route: 048
     Dates: start: 20250216, end: 20250217

REACTIONS (1)
  - Basal ganglia haemorrhage [Recovering/Resolving]

NARRATIVE: CASE EVENT DATE: 20250217
